FAERS Safety Report 5446920-0 (Version None)
Quarter: 2007Q3

REPORT INFORMATION
  Report Type: 
  Country: None (occurrence: None)
  Receive Date: 20070907
  Receipt Date: 20070815
  Transmission Date: 20080115
  Serious: Yes (Other)
  Sender: FDA-Public Use
  Company Number: CZ-MERCK-0708CZE00016

PATIENT
  Sex: Female

DRUGS (14)
  1. CRIXIVAN [Suspect]
     Indication: HIV INFECTION
     Route: 048
  2. STOCRIN [Suspect]
     Indication: HIV INFECTION
     Route: 048
  3. RITONAVIR [Suspect]
     Indication: HIV INFECTION
     Route: 065
  4. RITONAVIR [Suspect]
     Route: 065
  5. NELFINAVIR MESYLATE [Suspect]
     Indication: HIV INFECTION
     Route: 065
  6. SAQUINAVIR [Suspect]
     Indication: HIV INFECTION
     Route: 065
  7. LOPINAVIR [Suspect]
     Indication: HIV INFECTION
     Route: 065
  8. ZIDOVUDINE [Suspect]
     Indication: HIV INFECTION
     Route: 065
  9. ZALCITABINE [Suspect]
     Route: 065
  10. STAVUDINE [Suspect]
     Indication: HIV INFECTION
     Route: 065
  11. LAMIVUDINE [Suspect]
     Indication: HIV INFECTION
     Route: 065
  12. ABACAVIR SULFATE [Suspect]
     Indication: HIV INFECTION
     Route: 065
  13. DIDANOSINE [Suspect]
     Indication: HIV INFECTION
     Route: 065
  14. NEVIRAPINE [Suspect]
     Indication: HIV INFECTION
     Route: 065

REACTIONS (1)
  - DRUG RESISTANCE [None]
